FAERS Safety Report 24769131 (Version 3)
Quarter: 2025Q1

REPORT INFORMATION
  Report Type: Spontaneous
  Country: US (occurrence: US)
  Receive Date: 20241224
  Receipt Date: 20250303
  Transmission Date: 20250408
  Serious: No
  Sender: BAUSCH AND LOMB
  Company Number: US-BAUSCHBL-2024BNL039035

PATIENT
  Sex: Female

DRUGS (3)
  1. MIEBO [Suspect]
     Active Substance: PERFLUOROHEXYLOCTANE
     Indication: Product used for unknown indication
     Route: 047
  2. MIEBO [Suspect]
     Active Substance: PERFLUOROHEXYLOCTANE
     Dosage: 1 DROP INTO EACH EYE THREE TIMES DAILY
     Route: 047
  3. MIEBO [Suspect]
     Active Substance: PERFLUOROHEXYLOCTANE
     Dosage: 1 DROP INTO EACH EYE THREE TIMES DAILY
     Route: 047

REACTIONS (8)
  - Ocular hyperaemia [Unknown]
  - Accidental exposure to product [Unknown]
  - Wrong dose [Unknown]
  - Exposure via skin contact [Unknown]
  - Product use complaint [Unknown]
  - Product complaint [Unknown]
  - Intentional product use issue [Unknown]
  - Product use issue [Unknown]
